FAERS Safety Report 12947088 (Version 1)
Quarter: 2016Q4

REPORT INFORMATION
  Report Type: Spontaneous
  Country: US (occurrence: US)
  Receive Date: 20161116
  Receipt Date: 20161116
  Transmission Date: 20170207
  Serious: No
  Sender: FDA-Public Use
  Company Number: None

PATIENT
  Age: 59 Year
  Sex: Male
  Weight: 122.9 kg

DRUGS (1)
  1. REMICADE [Suspect]
     Active Substance: INFLIXIMAB
     Indication: RHEUMATOID ARTHRITIS
     Dosage: 400MG WEEKS 0, 2. 6 IVPB
     Route: 042
     Dates: start: 20160902

REACTIONS (2)
  - Refusal of treatment by patient [None]
  - Chills [None]

NARRATIVE: CASE EVENT DATE: 20161017
